FAERS Safety Report 13261903 (Version 5)
Quarter: 2017Q2

REPORT INFORMATION
  Report Type: Report from Study
  Country: None (occurrence: BE)
  Receive Date: 20170222
  Receipt Date: 20170420
  Transmission Date: 20170830
  Serious: Yes (Death, Hospitalization)
  Sender: FDA-Public Use
  Company Number: BE-ABBVIE-15P-013-1480874-00

PATIENT
  Age: 81 Year
  Sex: Female

DRUGS (22)
  1. DUODOPA [Suspect]
     Active Substance: CARBIDOPA\LEVODOPA
     Indication: PARKINSON^S DISEASE
     Dosage: AM=2.5ML; CD=1.1ML/HR DURING 16 HRS; ED= 0.5ML; ND=0.8ML/HR DURING 8HRS
     Route: 050
     Dates: start: 20150216, end: 20150219
  2. DUODOPA [Suspect]
     Active Substance: CARBIDOPA\LEVODOPA
     Dosage: AM=2.5ML; CD=2.5ML/H FOR 16HRS; ED=1.3ML; ND=2ML/H FOR 8HRS
     Route: 050
     Dates: start: 20160105, end: 20160517
  3. DUODOPA [Suspect]
     Active Substance: CARBIDOPA\LEVODOPA
     Dosage: AM:2.7ML; CD: 2.8ML/H FOR 16HRS; ND: 2ML/H FOR 8 HRS; ED:1.3ML
     Route: 050
     Dates: start: 20160719, end: 20160825
  4. DUODOPA [Suspect]
     Active Substance: CARBIDOPA\LEVODOPA
     Dosage: AM: 2.7 ML; CD= 3.3 ML/H DURING 16 HRS; ND= 2 ML/H DURING 8 HRS; ED= 2 ML
     Route: 050
     Dates: start: 20170106, end: 20170110
  5. MODURETIC 5-50 [Concomitant]
     Active Substance: AMILORIDE HYDROCHLORIDE\HYDROCHLOROTHIAZIDE
     Indication: PRODUCT USED FOR UNKNOWN INDICATION
     Route: 048
  6. DUODOPA [Suspect]
     Active Substance: CARBIDOPA\LEVODOPA
     Dosage: AM=2ML; CD=2.2ML/HR DURING 16HRS; ED=1.7ML/HR DURING 8 HRS.
     Route: 050
     Dates: start: 20150617, end: 20151006
  7. DUODOPA [Suspect]
     Active Substance: CARBIDOPA\LEVODOPA
     Dosage: AM=2.5ML; CD=2.3ML/HR DURING 16HRS; ED=1ML; ND= 1.9ML/HR DURING 16HRS.
     Route: 050
     Dates: start: 20151006, end: 20151015
  8. DUODOPA [Suspect]
     Active Substance: CARBIDOPA\LEVODOPA
     Dosage: AM=2.2ML; CD=2.2ML/HR DURING 16HRS; ED=1ML; ND=1.8ML/HR DURING 8 HR
     Route: 050
     Dates: start: 20151015, end: 20151021
  9. DUODOPA [Suspect]
     Active Substance: CARBIDOPA\LEVODOPA
     Dosage: AM=2.7ML CD=3.1ML/HR DURING 16HRS ED=2ML ND=2ML/HR DURING 8HRS
     Route: 050
     Dates: start: 20161207
  10. DUODOPA [Suspect]
     Active Substance: CARBIDOPA\LEVODOPA
     Dosage: AM=2.2ML; CD=2.3ML/HR DURING 16HRS; ED=1.3ML; ND=2ML /HR 8HRS
     Route: 050
     Dates: start: 20151021, end: 20160105
  11. DUODOPA [Suspect]
     Active Substance: CARBIDOPA\LEVODOPA
     Dosage: AM= 2.7 ML; CD= 3.4 ML/H DURING 16 HRS; ND= 2 ML/H DURING 8 HRS; ED= 1.5 ML
     Route: 050
     Dates: start: 20170110, end: 20170120
  12. DUODOPA [Suspect]
     Active Substance: CARBIDOPA\LEVODOPA
     Dosage: AM=2.5ML; CD=2.7ML/H FOR 16HRS; ED=1.3ML; ND=2ML/H FOR 8HRS
     Route: 050
     Dates: start: 20160517, end: 20160519
  13. DUODOPA [Suspect]
     Active Substance: CARBIDOPA\LEVODOPA
     Dosage: AM=2.5ML; CD=2.4 ML/H FOR 16HRS; ED=1.3ML; ND=2ML/H FOR 8HRS
     Route: 050
     Dates: start: 20160519, end: 20160629
  14. DUODOPA [Suspect]
     Active Substance: CARBIDOPA\LEVODOPA
     Dosage: AM=2.7ML CD=2.6ML/HR DURING 16HRS ED=1.3ML ND=2ML/HR DURING 8HRS
     Route: 050
     Dates: start: 20160825, end: 20161018
  15. DUODOPA [Suspect]
     Active Substance: CARBIDOPA\LEVODOPA
     Route: 050
     Dates: end: 20170106
  16. DUODOPA [Suspect]
     Active Substance: CARBIDOPA\LEVODOPA
     Dosage: AM= 3 ML; CD= 2.6 ML/H DURING 16 HRS; ED= 1.5 ML
     Route: 050
     Dates: start: 20170126
  17. LOSFERRON [Concomitant]
     Indication: PRODUCT USED FOR UNKNOWN INDICATION
     Route: 048
  18. DUODOPA [Suspect]
     Active Substance: CARBIDOPA\LEVODOPA
     Dosage: DOSES CONTINUOUSLY ADAPTED AND MONITORED.
     Route: 050
     Dates: start: 20140219, end: 20150617
  19. DUODOPA [Suspect]
     Active Substance: CARBIDOPA\LEVODOPA
     Dosage: AM=2.7ML CD=2.8ML/HR DURING 16HRS ED=1.3ML ND=2ML/HR DURING 8HRS
     Route: 050
     Dates: start: 20161018, end: 20161207
  20. DUODOPA [Suspect]
     Active Substance: CARBIDOPA\LEVODOPA
     Dosage: AM= 3 ML; CD= 3 ML/H DURING 16 HRS; ND= 2 ML/H DURING 8 HRS; ED= 1.5 ML
     Route: 050
     Dates: start: 20170120, end: 20170126
  21. PROLOPA 250 [Concomitant]
     Indication: PRODUCT USED FOR UNKNOWN INDICATION
     Dosage: DOSE STRENGHT= 200MG/ 50MG; UNIT DOSE= 0.25 TABLET, 9 PER DAY AS EMERGENCY MEDICATION
     Route: 048
  22. DUODOPA [Suspect]
     Active Substance: CARBIDOPA\LEVODOPA
     Dosage: AM:2.5ML; CD: 2.7ML/H FOR 16HRS; ND: 2ML/H FOR 8 HRS; ED:1.3ML
     Route: 050
     Dates: start: 20160629, end: 20160719

REACTIONS (14)
  - Death [Fatal]
  - Dyskinesia [Not Recovered/Not Resolved]
  - Freezing phenomenon [Not Recovered/Not Resolved]
  - Excessive granulation tissue [Unknown]
  - Syncope [Unknown]
  - Tremor [Not Recovered/Not Resolved]
  - Gait disturbance [Not Recovered/Not Resolved]
  - Malaise [Not Recovered/Not Resolved]
  - Drug effect incomplete [Not Recovered/Not Resolved]
  - Extra dose administered [Unknown]
  - General physical health deterioration [Not Recovered/Not Resolved]
  - Drug effect delayed [Not Recovered/Not Resolved]
  - On and off phenomenon [Not Recovered/Not Resolved]
  - Speech disorder [Unknown]

NARRATIVE: CASE EVENT DATE: 201606
